FAERS Safety Report 9813505 (Version 1)
Quarter: 2014Q1

REPORT INFORMATION
  Report Type: Spontaneous
  Country: US (occurrence: None)
  Receive Date: 20140109
  Receipt Date: 20140109
  Transmission Date: 20141002
  Serious: Yes (Hospitalization)
  Sender: FDA-Public Use
  Company Number: DSU-2014-00009

PATIENT
  Age: 81 Year
  Sex: Female

DRUGS (3)
  1. AZOR [Suspect]
     Indication: HYPERTENSION
     Dosage: 5/40 MG (QD), PER ORAL
     Route: 048
     Dates: start: 201211, end: 20131121
  2. ATENOLOL (ATENOLOL) (ATENOLOL) [Concomitant]
  3. XANAX [Concomitant]

REACTIONS (3)
  - Diarrhoea [None]
  - Dehydration [None]
  - No therapeutic response [None]
